FAERS Safety Report 10191807 (Version 1)
Quarter: 2014Q2

REPORT INFORMATION
  Report Type: Spontaneous
  Country: GB (occurrence: GB)
  Receive Date: 20140523
  Receipt Date: 20140523
  Transmission Date: 20141212
  Serious: Yes (Hospitalization)
  Sender: FDA-Public Use
  Company Number: GB-TEVA-481732ISR

PATIENT
  Age: 64 Year
  Sex: Male

DRUGS (1)
  1. NAPROXEN [Suspect]
     Indication: OSTEOARTHRITIS
     Dosage: (FORM: NOT REPORTED)
     Route: 048
     Dates: start: 20050712, end: 20110912

REACTIONS (1)
  - Cerebrovascular accident [Unknown]
